FAERS Safety Report 19461579 (Version 1)
Quarter: 2021Q2

REPORT INFORMATION
  Report Type: Spontaneous
  Country: JP (occurrence: JP)
  Receive Date: 20210625
  Receipt Date: 20210625
  Transmission Date: 20210717
  Serious: Yes (Death)
  Sender: FDA-Public Use
  Company Number: JP-EISAI MEDICAL RESEARCH-EC-2021-095067

PATIENT
  Age: 78 Year
  Sex: Male

DRUGS (2)
  1. LENVIMA [Suspect]
     Active Substance: LENVATINIB
     Indication: HEPATOCELLULAR CARCINOMA
     Route: 048
     Dates: start: 20190109, end: 20190205
  2. XOFLUZA [Concomitant]
     Active Substance: BALOXAVIR MARBOXIL
     Indication: INFLUENZA
     Route: 065
     Dates: start: 20190121, end: 201901

REACTIONS (1)
  - Death [Fatal]
